FAERS Safety Report 9506549 (Version 1)
Quarter: 2013Q3

REPORT INFORMATION
  Report Type: Spontaneous
  Country: US (occurrence: None)
  Receive Date: 20130905
  Receipt Date: 20130905
  Transmission Date: 20140515
  Serious: Yes (Other)
  Sender: FDA-Public Use
  Company Number: None

PATIENT
  Age: 67 Year
  Sex: Male
  Weight: 99 kg

DRUGS (1)
  1. RITUXAN [Suspect]
     Indication: MANTLE CELL LYMPHOMA
     Dates: start: 20130523

REACTIONS (1)
  - Thrombocytopenia [None]
